FAERS Safety Report 12197644 (Version 14)
Quarter: 2022Q1

REPORT INFORMATION
  Report Type: Report from Study
  Country: GB (occurrence: None)
  Receive Date: 20160322
  Receipt Date: 20220211
  Transmission Date: 20220424
  Serious: Yes (Life-Threatening, Hospitalization)
  Sender: FDA-Public Use
  Company Number: GB-ROCHE-1724900

PATIENT
  Age: 71 Year
  Sex: Male
  Weight: 68.9 kg

DRUGS (23)
  1. OBINUTUZUMAB [Suspect]
     Active Substance: OBINUTUZUMAB
     Indication: Chronic lymphocytic leukaemia
     Route: 042
     Dates: start: 20160209, end: 20160209
  2. OBINUTUZUMAB [Suspect]
     Active Substance: OBINUTUZUMAB
     Dosage: C1D2
     Route: 042
     Dates: start: 20160210, end: 20160210
  3. OBINUTUZUMAB [Suspect]
     Active Substance: OBINUTUZUMAB
     Dosage: C1D8
     Route: 042
     Dates: start: 20160217, end: 20160217
  4. OBINUTUZUMAB [Suspect]
     Active Substance: OBINUTUZUMAB
     Route: 042
     Dates: start: 20160225, end: 20160225
  5. OBINUTUZUMAB [Suspect]
     Active Substance: OBINUTUZUMAB
     Dosage: LAST DOSE: 01/MAR/2016 C1D22
     Route: 042
     Dates: start: 20160301, end: 20160301
  6. OBINUTUZUMAB [Suspect]
     Active Substance: OBINUTUZUMAB
     Route: 042
     Dates: start: 20160405
  7. OBINUTUZUMAB [Suspect]
     Active Substance: OBINUTUZUMAB
     Route: 042
     Dates: start: 20160503, end: 20160503
  8. OBINUTUZUMAB [Suspect]
     Active Substance: OBINUTUZUMAB
     Route: 042
     Dates: start: 20160630, end: 20160630
  9. CHLORAMBUCIL [Suspect]
     Active Substance: CHLORAMBUCIL
     Indication: Chronic lymphocytic leukaemia
     Route: 065
     Dates: start: 20160209
  10. CHLORAMBUCIL [Suspect]
     Active Substance: CHLORAMBUCIL
     Dosage: LAST DOSE: 01/MAR/2016
     Route: 065
     Dates: start: 20160301
  11. CHLORAMBUCIL [Suspect]
     Active Substance: CHLORAMBUCIL
     Dosage: C2D1, STUDY TREATMENT STOPPED AS PER PROTOCOL.
     Route: 065
     Dates: start: 20160404
  12. CHLORAMBUCIL [Suspect]
     Active Substance: CHLORAMBUCIL
     Route: 065
     Dates: start: 20160405
  13. FOLIC ACID [Concomitant]
     Active Substance: FOLIC ACID
     Indication: Prophylaxis
     Dates: start: 201512, end: 20160117
  14. CHLORPHENIRAMINE MALEATE [Concomitant]
     Active Substance: CHLORPHENIRAMINE MALEATE
     Dosage: AS NEEDED?THERAPY DATES: 25/FEB/2016, 03/JUN/2016, 30/JUN/2016, 10/FEB/2016, 03/MAY/2016, 17/FEB/201
     Dates: start: 201602
  15. DALTEPARIN [Concomitant]
     Active Substance: DALTEPARIN
     Indication: Pulmonary embolism
     Dates: start: 201601
  16. METOCLOPRAMIDE [Concomitant]
     Active Substance: METOCLOPRAMIDE
     Indication: Nausea
     Dosage: AS NEEDED?THERAPY DATES: 05/APR/2016, 09/FEB/2016
     Dates: start: 201602
  17. ALLOPURINOL [Concomitant]
     Active Substance: ALLOPURINOL
     Indication: Prophylaxis
     Dates: start: 201602
  18. ACETAMINOPHEN [Concomitant]
     Active Substance: ACETAMINOPHEN
     Indication: Pyrexia
     Dosage: AS NEEDED
     Dates: start: 20160305, end: 20160309
  19. ACETAMINOPHEN [Concomitant]
     Active Substance: ACETAMINOPHEN
     Dosage: PARACETAMOL DOSE ON 17/FEB/2016, 03/JUN/2016, 10/FEB/2016, 05/MAR/2016
     Dates: start: 20160209
  20. DEXAMETHASONE PHOSPHATE [Concomitant]
     Active Substance: DEXAMETHASONE PHOSPHATE
     Dosage: DOSE ON 10/FEB/2016, 17/FEB/2016, 25/FEB/2016, 28/JUL/2016, 05/APR/2016, 03/JUN/2016, 03/MAY/2016
     Dates: start: 20160209
  21. ACETAMINOPHEN\PHENYLEPHRINE [Concomitant]
     Active Substance: ACETAMINOPHEN\PHENYLEPHRINE
     Dates: start: 20160227, end: 20160305
  22. PREDNISOLONE [Concomitant]
     Active Substance: PREDNISOLONE
     Indication: Thrombocytopenia
  23. RANITIDINE [Concomitant]
     Active Substance: RANITIDINE

REACTIONS (4)
  - Chills [Unknown]
  - Pyrexia [Unknown]
  - Disorientation [Unknown]
  - Sepsis [Recovered/Resolved]

NARRATIVE: CASE EVENT DATE: 20160305
